FAERS Safety Report 9428067 (Version 1)
Quarter: 2013Q3

REPORT INFORMATION
  Report Type: Spontaneous
  Country: US (occurrence: US)
  Receive Date: 20130730
  Receipt Date: 20130730
  Transmission Date: 20140515
  Serious: No
  Sender: FDA-Public Use
  Company Number: US-ABBOTT-12P-163-0992756-00

PATIENT
  Age: 83 Year
  Sex: Male
  Weight: 71.73 kg

DRUGS (6)
  1. NIASPAN (COATED) [Suspect]
     Indication: BLOOD CHOLESTEROL INCREASED
     Dates: start: 20120917, end: 20120920
  2. BISTOLIC [Concomitant]
     Indication: MITRAL VALVE REPAIR
  3. TENTOL [Concomitant]
     Indication: BLOOD DISORDER
  4. LASIX [Concomitant]
     Indication: PRODUCT USED FOR UNKNOWN INDICATION
  5. SPIRONOLACTONE [Concomitant]
     Indication: FLUID RETENTION
  6. ARANSP [Concomitant]
     Indication: HAEMOLYTIC ANAEMIA

REACTIONS (3)
  - Rash erythematous [Recovered/Resolved]
  - Feeling hot [Recovered/Resolved]
  - Urticaria [Recovered/Resolved]
